FAERS Safety Report 5114669-X (Version None)
Quarter: 2006Q3

REPORT INFORMATION
  Report Type: 
  Country: None (occurrence: None)
  Receive Date: 20060926
  Receipt Date: 20060914
  Transmission Date: 20061208
  Serious: Yes (Death, Other)
  Sender: FDA-Public Use
  Company Number: US-JNJFOC-20051202419

PATIENT
  Sex: Female

DRUGS (13)
  1. REMICADE [Suspect]
     Indication: RHEUMATOID ARTHRITIS
     Route: 042
  2. PREDNISONE TAB [Concomitant]
  3. CELEBREX [Concomitant]
  4. FOSAMAX [Concomitant]
  5. TYLENOL [Concomitant]
  6. DIOVAN [Concomitant]
  7. FOLIC ACID [Concomitant]
  8. CALAN [Concomitant]
  9. K-DUR 10 [Concomitant]
  10. OSCAL [Concomitant]
  11. THEO-DUR [Concomitant]
  12. THERAGRAM [Concomitant]
  13. ELAVIL [Concomitant]

REACTIONS (6)
  - CHRONIC OBSTRUCTIVE PULMONARY DISEASE [None]
  - DEATH [None]
  - INVESTIGATION ABNORMAL [None]
  - NEOPLASM MALIGNANT [None]
  - PNEUMONIA [None]
  - RHEUMATOID ARTHRITIS [None]
